FAERS Safety Report 13538322 (Version 1)
Quarter: 2017Q2

REPORT INFORMATION
  Report Type: Report from Study
  Country: US (occurrence: US)
  Receive Date: 20170512
  Receipt Date: 20170512
  Transmission Date: 20170830
  Serious: Yes (Hospitalization)
  Sender: FDA-Public Use
  Company Number: US-TAIHO ONCOLOGY INC-EU-2017-00752

PATIENT
  Age: 73 Year
  Sex: Male
  Weight: 67.65 kg

DRUGS (6)
  1. TRIAMCINOLONE [Concomitant]
     Active Substance: TRIAMCINOLONE
  2. PREDNISONE. [Concomitant]
     Active Substance: PREDNISONE
  3. DOXAZOSIN [Concomitant]
     Active Substance: DOXAZOSIN\DOXAZOSIN MESYLATE
     Dosage: QHS
  4. LONSURF [Suspect]
     Active Substance: TIPIRACIL HYDROCHLORIDE\TRIFLURIDINE
     Indication: COLON CANCER METASTATIC
     Route: 048
     Dates: start: 20160826
  5. IRON [Concomitant]
     Active Substance: IRON
  6. SIMVASTATIN. [Concomitant]
     Active Substance: SIMVASTATIN
     Dosage: QHS

REACTIONS (2)
  - Myocardial infarction [Unknown]
  - Pancytopenia [Unknown]

NARRATIVE: CASE EVENT DATE: 201704
